FAERS Safety Report 11062485 (Version 1)
Quarter: 2015Q2

REPORT INFORMATION
  Report Type: Spontaneous
  Country: US (occurrence: US)
  Receive Date: 20150424
  Receipt Date: 20150424
  Transmission Date: 20150821
  Serious: Yes (Other)
  Sender: FDA-Public Use
  Company Number: US-PFIZER INC-2015141106

PATIENT
  Age: 49 Year
  Sex: Female

DRUGS (16)
  1. ALPRAZOLAM. [Suspect]
     Active Substance: ALPRAZOLAM
     Indication: PANIC DISORDER
  2. ESCITALOPRAM [Suspect]
     Active Substance: ESCITALOPRAM OXALATE
     Indication: POST-TRAUMATIC STRESS DISORDER
  3. LAMOTRIGINE. [Suspect]
     Active Substance: LAMOTRIGINE
     Indication: POST-TRAUMATIC STRESS DISORDER
  4. ESCITALOPRAM [Suspect]
     Active Substance: ESCITALOPRAM OXALATE
     Indication: BIPOLAR DISORDER
     Dosage: 25 MG, 1X/DAY
  5. LAMOTRIGINE. [Suspect]
     Active Substance: LAMOTRIGINE
     Indication: BIPOLAR DISORDER
     Dosage: 350 MG, DAILY (QHS)
  6. LAMOTRIGINE. [Suspect]
     Active Substance: LAMOTRIGINE
     Indication: GENERALISED ANXIETY DISORDER
  7. ESCITALOPRAM [Suspect]
     Active Substance: ESCITALOPRAM OXALATE
     Indication: PANIC DISORDER
  8. ESCITALOPRAM [Suspect]
     Active Substance: ESCITALOPRAM OXALATE
     Indication: GENERALISED ANXIETY DISORDER
  9. ALPRAZOLAM. [Suspect]
     Active Substance: ALPRAZOLAM
     Indication: BIPOLAR DISORDER
     Dosage: 1 MG, QID AS NEEDED (PRN)
  10. OXCARBAZEPINE. [Suspect]
     Active Substance: OXCARBAZEPINE
     Indication: PANIC DISORDER
  11. ALPRAZOLAM. [Suspect]
     Active Substance: ALPRAZOLAM
     Indication: POST-TRAUMATIC STRESS DISORDER
  12. OXCARBAZEPINE. [Suspect]
     Active Substance: OXCARBAZEPINE
     Indication: GENERALISED ANXIETY DISORDER
  13. ALPRAZOLAM. [Suspect]
     Active Substance: ALPRAZOLAM
     Indication: GENERALISED ANXIETY DISORDER
  14. LAMOTRIGINE. [Suspect]
     Active Substance: LAMOTRIGINE
     Indication: PANIC DISORDER
  15. OXCARBAZEPINE. [Suspect]
     Active Substance: OXCARBAZEPINE
     Indication: POST-TRAUMATIC STRESS DISORDER
  16. OXCARBAZEPINE. [Suspect]
     Active Substance: OXCARBAZEPINE
     Indication: BIPOLAR DISORDER
     Dosage: 300 MG, 2X/DAY

REACTIONS (3)
  - Bipolar disorder [Unknown]
  - Drug dispensing error [Unknown]
  - Suicidal ideation [Unknown]
